FAERS Safety Report 19640271 (Version 1)
Quarter: 2021Q3

REPORT INFORMATION
  Report Type: Spontaneous
  Country: BR (occurrence: BR)
  Receive Date: 20210730
  Receipt Date: 20210730
  Transmission Date: 20211014
  Serious: Yes (Hospitalization)
  Sender: FDA-Public Use
  Company Number: BR-NOVOPROD-814149

PATIENT
  Age: 12 Year
  Sex: Male
  Weight: 15.1 kg

DRUGS (1)
  1. INSULATARD HM [Suspect]
     Active Substance: INSULIN HUMAN
     Indication: TYPE 1 DIABETES MELLITUS
     Dosage: UNK
     Route: 065

REACTIONS (5)
  - Hyperphagia [Unknown]
  - Hypoglycaemia [Unknown]
  - Polyuria [Unknown]
  - Polydipsia [Unknown]
  - Hyperglycaemia [Unknown]
